FAERS Safety Report 7953823-6 (Version None)
Quarter: 2011Q4

REPORT INFORMATION
  Report Type: 
  Country: None (occurrence: None)
  Receive Date: 20111202
  Receipt Date: 20111123
  Transmission Date: 20120403
  Serious: Yes (Other)
  Sender: FDA-Public Use
  Company Number: US-US-EMD SERONO, INC.-7083343

PATIENT
  Sex: Female

DRUGS (1)
  1. REBIF [Suspect]
     Indication: MULTIPLE SCLEROSIS
     Route: 058
     Dates: start: 20110712, end: 20110901

REACTIONS (4)
  - OPTIC NEURITIS [None]
  - ADVERSE DRUG REACTION [None]
  - UNEVALUABLE EVENT [None]
  - ASTHENIA [None]
